FAERS Safety Report 21932628 (Version 2)
Quarter: 2023Q1

REPORT INFORMATION
  Report Type: Spontaneous
  Country: US (occurrence: US)
  Receive Date: 20230131
  Receipt Date: 20230206
  Transmission Date: 20230417
  Serious: Yes (Other)
  Sender: FDA-Public Use
  Company Number: US-MLMSERVICE-20230119-4050113-1

PATIENT
  Age: 53 Year
  Sex: Male

DRUGS (5)
  1. TESTOSTERONE [Interacting]
     Active Substance: TESTOSTERONE
     Dosage: UNK
     Route: 030
  2. WARFARIN [Interacting]
     Active Substance: WARFARIN
     Indication: Anticoagulant therapy
     Dosage: 16 MG(DAY ZERO)
  3. WARFARIN [Interacting]
     Active Substance: WARFARIN
     Dosage: 6 MG(DAY 11)
  4. WARFARIN [Interacting]
     Active Substance: WARFARIN
     Dosage: 8 MG(DAY 21)
  5. WARFARIN [Interacting]
     Active Substance: WARFARIN
     Dosage: 13 MG(DAY 29)

REACTIONS (2)
  - Anticoagulation drug level above therapeutic [Unknown]
  - Drug interaction [Unknown]
